FAERS Safety Report 7982317-7 (Version None)
Quarter: 2011Q4

REPORT INFORMATION
  Report Type: 
  Country: None (occurrence: None)
  Receive Date: 20111215
  Receipt Date: 20111205
  Transmission Date: 20120403
  Serious: Yes (Other)
  Sender: FDA-Public Use
  Company Number: PHHY2011JP103716

PATIENT
  Age: 63 Year
  Sex: Male

DRUGS (2)
  1. VOLTAREN [Suspect]
     Route: 048
     Dates: start: 20110101, end: 20110101
  2. TAMIFLU [Suspect]

REACTIONS (1)
  - LIVER DISORDER [None]
